FAERS Safety Report 12835982 (Version 1)
Quarter: 2016Q4

REPORT INFORMATION
  Report Type: Spontaneous
  Country: US (occurrence: US)
  Receive Date: 20161011
  Receipt Date: 20161011
  Transmission Date: 20170207
  Serious: No
  Sender: FDA-Public Use
  Company Number: US-009507513-1609USA014533

PATIENT
  Sex: Female

DRUGS (4)
  1. ZOFRAN [Concomitant]
     Active Substance: ONDANSETRON HYDROCHLORIDE
     Dosage: UNK
  2. NEXPLANON [Suspect]
     Active Substance: ETONOGESTREL
     Dosage: 68 MG, 1 ROD
     Route: 059
     Dates: start: 20160912
  3. RHOGAM (RHO(D) IMMUNE GLOBULIN) [Concomitant]
     Dosage: UNK
  4. NEXPLANON [Suspect]
     Active Substance: ETONOGESTREL
     Indication: CONTRACEPTION
     Dosage: 68 MG, IN ARM, ONE ROD PER 3 YEARS
     Route: 059
     Dates: start: 20160830, end: 20160912

REACTIONS (2)
  - Device kink [Recovered/Resolved]
  - Implant site swelling [Unknown]

NARRATIVE: CASE EVENT DATE: 2016
